FAERS Safety Report 7692207-5 (Version None)
Quarter: 2011Q3

REPORT INFORMATION
  Report Type: 
  Country: None (occurrence: None)
  Receive Date: 20110818
  Receipt Date: 20110818
  Transmission Date: 20111222
  Serious: Yes (Hospitalization)
  Sender: FDA-Public Use
  Company Number: US-ABBOTT-11P-163-0846432-00

PATIENT
  Sex: Male
  Weight: 74.91 kg

DRUGS (2)
  1. FOLIC ACID [Concomitant]
     Indication: PSORIATIC ARTHROPATHY
  2. HUMIRA [Suspect]
     Indication: PSORIATIC ARTHROPATHY
     Dates: start: 20050401

REACTIONS (4)
  - PAIN IN EXTREMITY [None]
  - SKIN FISSURES [None]
  - AORTIC ANEURYSM [None]
  - TINEA PEDIS [None]
